FAERS Safety Report 15490186 (Version 4)
Quarter: 2019Q1

REPORT INFORMATION
  Report Type: Report from Study
  Country: US (occurrence: US)
  Receive Date: 20181011
  Receipt Date: 20190206
  Transmission Date: 20190417
  Serious: No
  Sender: FDA-Public Use
  Company Number: PHEH2018US041693

PATIENT
  Sex: Female

DRUGS (3)
  1. GILENYA [Suspect]
     Active Substance: FINGOLIMOD HYDROCHLORIDE
     Dosage: 0.5 MG, FIVE DAYS IN WEEK
     Route: 048
  2. GILENYA [Suspect]
     Active Substance: FINGOLIMOD HYDROCHLORIDE
     Indication: MULTIPLE SCLEROSIS
     Dosage: 0.5 MG, QD
     Route: 048
     Dates: start: 20170316
  3. GILENYA [Suspect]
     Active Substance: FINGOLIMOD HYDROCHLORIDE
     Dosage: 0.5 MG, QD
     Route: 048
     Dates: start: 20180620

REACTIONS (7)
  - Oropharyngeal pain [Unknown]
  - Temporomandibular joint syndrome [Unknown]
  - Fall [Not Recovered/Not Resolved]
  - Nasopharyngitis [Unknown]
  - Prescribed underdose [Unknown]
  - Aphthous ulcer [Unknown]
  - White blood cell count decreased [Not Recovered/Not Resolved]
